FAERS Safety Report 18790576 (Version 1)
Quarter: 2021Q1

REPORT INFORMATION
  Report Type: Report from Study
  Country: CA (occurrence: CA)
  Receive Date: 20210126
  Receipt Date: 20210126
  Transmission Date: 20210419
  Serious: Yes (Other)
  Sender: FDA-Public Use
  Company Number: CA-GLAXOSMITHKLINE-CA2021AMR000415

PATIENT
  Age: 37 Year
  Sex: Male

DRUGS (2)
  1. MEPOLIZUMAB [Suspect]
     Active Substance: MEPOLIZUMAB
     Indication: ASTHMA
     Dosage: 100 MG, Z (MONTHLY)
     Route: 042
     Dates: start: 20171211
  2. MEPOLIZUMAB [Suspect]
     Active Substance: MEPOLIZUMAB
     Dosage: 100 MG, Z (MONTHLY)
     Route: 042
     Dates: start: 20171211

REACTIONS (10)
  - Mental disorder [Unknown]
  - Feeling abnormal [Unknown]
  - Dizziness [Unknown]
  - Bradykinesia [Unknown]
  - Feeling drunk [Unknown]
  - Disorientation [Unknown]
  - Speech disorder [Unknown]
  - Loss of consciousness [Unknown]
  - Stupor [Unknown]
  - Dysarthria [Unknown]

NARRATIVE: CASE EVENT DATE: 20201222
